FAERS Safety Report 9759702 (Version 1)
Quarter: 2013Q4

REPORT INFORMATION
  Report Type: Spontaneous
  Country: US (occurrence: US)
  Receive Date: 20131216
  Receipt Date: 20131216
  Transmission Date: 20140711
  Serious: No
  Sender: FDA-Public Use
  Company Number: US-GILEAD-2010-0029047

PATIENT
  Age: 75 Year
  Sex: Female
  Weight: 53.6 kg

DRUGS (6)
  1. LETAIRIS [Suspect]
     Indication: PULMONARY ARTERIAL HYPERTENSION
     Route: 048
     Dates: start: 20091217
  2. ASPIRIN [Concomitant]
  3. TYLENOL [Concomitant]
  4. MULTIPLE VIT [Concomitant]
  5. LASIX [Concomitant]
  6. PLAQUENIL [Concomitant]

REACTIONS (1)
  - Local swelling [Unknown]
